FAERS Safety Report 11612303 (Version 1)
Quarter: 2015Q4

REPORT INFORMATION
  Report Type: Spontaneous
  Country: AT (occurrence: AT)
  Receive Date: 20151008
  Receipt Date: 20151008
  Transmission Date: 20160304
  Serious: Yes (Hospitalization)
  Sender: FDA-Public Use
  Company Number: AT-JNJFOC-20151000391

PATIENT
  Age: 5 Year
  Sex: Male

DRUGS (1)
  1. RISPERIDONE. [Suspect]
     Active Substance: RISPERIDONE
     Indication: PRODUCT USED FOR UNKNOWN INDICATION
     Dosage: RISPERIDONE 3 MG ; 0.5 PLUS 1 TABLET
     Route: 048
     Dates: start: 20140808, end: 20140808

REACTIONS (6)
  - Dysphagia [Recovered/Resolved]
  - Incorrect dose administered [Recovered/Resolved]
  - Salivary hypersecretion [Recovered/Resolved]
  - Glossodynia [Recovered/Resolved]
  - Dizziness [Recovered/Resolved]
  - Tongue spasm [Recovered/Resolved]

NARRATIVE: CASE EVENT DATE: 20140808
